FAERS Safety Report 5914913-2 (Version None)
Quarter: 2008Q4

REPORT INFORMATION
  Report Type: 
  Country: None (occurrence: None)
  Receive Date: 20081010
  Receipt Date: 20081008
  Transmission Date: 20090506
  Serious: Yes (Life-Threatening, Disabling, Other)
  Sender: FDA-Public Use
  Company Number: PHEH2007US02286

PATIENT
  Sex: Female
  Weight: 83.9 kg

DRUGS (24)
  1. LAMISIL [Suspect]
     Indication: ONYCHOMYCOSIS
     Dosage: 250 MG, QD
     Route: 048
     Dates: start: 20061016, end: 20061216
  2. CELEXA [Concomitant]
  3. LEVOXYL [Concomitant]
  4. PRILOSEC [Concomitant]
  5. ASPIRIN [Concomitant]
  6. COZAAR [Concomitant]
  7. ATENOLOL [Concomitant]
  8. FOSAMAX [Concomitant]
  9. GLUCOSAMINE [Concomitant]
  10. CHONDROITIN SULFATE [Concomitant]
  11. MANGANESE [Concomitant]
  12. MAGNESIUM SULFATE [Concomitant]
  13. MULTI-VITAMIN [Concomitant]
  14. CALCIUM [Concomitant]
  15. FLAXSEED OIL [Concomitant]
  16. SELENIUM [Concomitant]
  17. GRAPE SEED EXTRACT [Concomitant]
  18. ASCORBIC ACID [Concomitant]
  19. GARLIC [Concomitant]
  20. VITAMIN E [Concomitant]
  21. B50 [Concomitant]
  22. CELEBREX [Concomitant]
  23. ACTOS [Concomitant]
  24. LIPITOR [Concomitant]

REACTIONS (7)
  - AGEUSIA [None]
  - ANOREXIA [None]
  - DYSGEUSIA [None]
  - GASTROINTESTINAL TUBE INSERTION [None]
  - NAUSEA [None]
  - SUICIDE ATTEMPT [None]
  - WEIGHT DECREASED [None]
